FAERS Safety Report 8167480-X (Version None)
Quarter: 2012Q1

REPORT INFORMATION
  Report Type: 
  Country: None (occurrence: None)
  Receive Date: 20120227
  Receipt Date: 20120221
  Transmission Date: 20120608
  Serious: Yes (Hospitalization)
  Sender: FDA-Public Use
  Company Number: CA-EISAI INC-E2020-10388-SPO-CA

PATIENT
  Sex: Male

DRUGS (1)
  1. ARICEPT [Suspect]
     Indication: DEMENTIA
     Dosage: UNKNOWN
     Route: 048
     Dates: start: 20111201

REACTIONS (5)
  - DELIRIUM [None]
  - PSYCHOTIC DISORDER [None]
  - NAUSEA [None]
  - CONVULSION [None]
  - HEADACHE [None]
